FAERS Safety Report 16295524 (Version 1)
Quarter: 2019Q2

REPORT INFORMATION
  Report Type: Spontaneous
  Country: US (occurrence: US)
  Receive Date: 20190404
  Receipt Date: 20190404
  Transmission Date: 20190711
  Serious: Yes (Hospitalization)
  Sender: FDA-Public Use
  Company Number: None

PATIENT
  Age: 62 Year
  Sex: Male
  Weight: 87.54 kg

DRUGS (1)
  1. OXALIPLATIN. [Suspect]
     Active Substance: OXALIPLATIN
     Indication: COLON CANCER METASTATIC
     Dosage: ?          OTHER FREQUENCY:914 DAYS;?
     Route: 042
     Dates: start: 20190318

REACTIONS (6)
  - Respiratory distress [None]
  - Flushing [None]
  - Hyperhidrosis [None]
  - Muscle spasms [None]
  - Adverse drug reaction [None]
  - Dysarthria [None]

NARRATIVE: CASE EVENT DATE: 20190318
